FAERS Safety Report 10506926 (Version 1)
Quarter: 2014Q4

REPORT INFORMATION
  Report Type: Spontaneous
  Country: US (occurrence: None)
  Receive Date: 20141007
  Receipt Date: 20141007
  Transmission Date: 20150528
  Serious: Yes (Death)
  Sender: FDA-Public Use
  Company Number: 2557758

PATIENT
  Age: 21 Year
  Sex: Female

DRUGS (4)
  1. PHENOBARBITAL. [Concomitant]
     Active Substance: PHENOBARBITAL
  2. PHENYTOIN. [Suspect]
     Active Substance: PHENYTOIN
     Indication: SEIZURE
  3. LAMOTRIGINE. [Suspect]
     Active Substance: LAMOTRIGINE
     Indication: SEIZURE
  4. LEVETIRACETAM. [Concomitant]
     Active Substance: LEVETIRACETAM

REACTIONS (25)
  - Rectal ulcer [None]
  - Cytopenia [None]
  - Lymphohistiocytosis [None]
  - Abdominal pain [None]
  - Duodenal ulcer haemorrhage [None]
  - Enteritis [None]
  - Cachexia [None]
  - Pancreatitis [None]
  - Pyrexia [None]
  - Enterocolitis [None]
  - Colitis [None]
  - Large intestinal ulcer [None]
  - Serum ferritin increased [None]
  - Drug reaction with eosinophilia and systemic symptoms [None]
  - Rash [None]
  - Hepatitis [None]
  - Vomiting [None]
  - Thrombocytopenia [None]
  - Nausea [None]
  - Diarrhoea [None]
  - Multi-organ failure [None]
  - Malabsorption [None]
  - Gastrointestinal disorder [None]
  - Malnutrition [None]
  - Histiocytosis haematophagic [None]
